FAERS Safety Report 8799660 (Version 4)
Quarter: 2012Q4

REPORT INFORMATION
  Report Type: 
  Country: GB (occurrence: GB)
  Receive Date: 20120919
  Receipt Date: 20121031
  Transmission Date: 20130627
  Serious: Yes (Other)
  Sender: FDA-Public Use
  Company Number: GB-AMGEN-GBRSP2012055243

PATIENT
  Age: 51 Year
  Sex: Female
  Weight: 84.6 kg

DRUGS (5)
  1. ARANESP [Suspect]
     Indication: ANAEMIA
     Dosage: 40 mug, qwk
     Route: 058
     Dates: start: 20120807, end: 20120807
  2. CALCICHEW [Concomitant]
     Indication: HYPERPHOSPHATAEMIA
     Dosage: 500 mg, bid
     Route: 048
  3. CARBIMAZOLE [Concomitant]
     Indication: HYPERTHYROIDISM
     Dosage: 20 mg, qd
     Route: 048
  4. AMLODIPINE [Concomitant]
     Indication: HYPERTENSION
     Dosage: 5 mg, qd
     Route: 048
     Dates: start: 20120807
  5. CHOLECALCIFEROL [Concomitant]
     Indication: VITAMIN D DEFICIENCY
     Dosage: 20000 UNK, qwk
     Dates: start: 20120807

REACTIONS (5)
  - Chest pain [Recovered/Resolved]
  - Back pain [Recovered/Resolved]
  - Abdominal pain [Unknown]
  - Malaise [Recovered/Resolved]
  - Administration related reaction [Unknown]
